FAERS Safety Report 9144018 (Version 1)
Quarter: 2013Q1

REPORT INFORMATION
  Report Type: Report from Study
  Country: IN (occurrence: IN)
  Receive Date: 20130306
  Receipt Date: 20130306
  Transmission Date: 20140127
  Serious: Yes (Hospitalization)
  Sender: FDA-Public Use
  Company Number: IN-GLAXOSMITHKLINE-A0763961B

PATIENT
  Age: 63 Year
  Sex: Male
  Weight: 55 kg

DRUGS (3)
  1. LAPATINIB [Suspect]
     Indication: HEAD AND NECK CANCER
     Dosage: 1500MG PER DAY
     Route: 048
     Dates: start: 20081205
  2. CISPLATIN [Suspect]
     Indication: HEAD AND NECK CANCER
     Dosage: 100MGM2 CYCLIC
     Route: 042
     Dates: start: 20081209
  3. RADIOTHERAPY [Concomitant]
     Indication: HEAD AND NECK CANCER
     Dosage: 10GY PER DAY
     Route: 061
     Dates: start: 20081209, end: 20081215

REACTIONS (3)
  - Stomatitis haemorrhagic [Recovered/Resolved]
  - Stomatitis [Recovered/Resolved]
  - Asthenia [Recovered/Resolved]
